FAERS Safety Report 21772326 (Version 1)
Quarter: 2022Q4

REPORT INFORMATION
  Report Type: Report from Study
  Country: US (occurrence: US)
  Receive Date: 20221223
  Receipt Date: 20221223
  Transmission Date: 20230113
  Serious: No
  Sender: FDA-Public Use
  Company Number: US-ABBVIE-4207902

PATIENT

DRUGS (1)
  1. HUMIRA [Suspect]
     Active Substance: ADALIMUMAB
     Indication: Rheumatoid arthritis
     Dosage: CITRATE FREE?STRENGTH  40 MG
     Route: 058

REACTIONS (7)
  - Mouth swelling [Unknown]
  - Heart rate increased [Unknown]
  - Muscle spasms [Unknown]
  - Hypersomnia [Unknown]
  - Injection site urticaria [Unknown]
  - Rheumatoid arthritis [Unknown]
  - Feeling abnormal [Unknown]
